FAERS Safety Report 13503309 (Version 6)
Quarter: 2017Q3

REPORT INFORMATION
  Report Type: Spontaneous
  Country: US (occurrence: US)
  Receive Date: 20170502
  Receipt Date: 20170925
  Transmission Date: 20171127
  Serious: Yes (Congenital Anomaly, Other)
  Sender: FDA-Public Use
  Company Number: PHEH2017US012377

PATIENT
  Sex: Male

DRUGS (4)
  1. ZOFRAN [Suspect]
     Active Substance: ONDANSETRON HYDROCHLORIDE
     Indication: FOETAL EXPOSURE DURING PREGNANCY
     Dosage: MOTHER DOSE: 01 MG, UNK
     Route: 064
  2. ZOFRAN ODT [Suspect]
     Active Substance: ONDANSETRON HYDROCHLORIDE
     Indication: FOETAL EXPOSURE DURING PREGNANCY
     Dosage: MOTHER DOSE: 08 MG, UNK
     Route: 064
  3. ONDANSETRON. [Suspect]
     Active Substance: ONDANSETRON
     Indication: FOETAL EXPOSURE DURING PREGNANCY
     Dosage: MOTHER^S DOSE: 8 MG, UNK
     Route: 064
  4. ZOFRAN [Suspect]
     Active Substance: ONDANSETRON HYDROCHLORIDE
     Indication: FOETAL EXPOSURE DURING PREGNANCY
     Dosage: MOTHER DOSE: 04 MG, UNK
     Route: 064

REACTIONS (38)
  - Atrial septal defect [Unknown]
  - Pericarditis [Unknown]
  - Abdominal distension [Unknown]
  - Congenital aortic dilatation [Unknown]
  - Pulmonary artery stenosis congenital [Unknown]
  - Atelectasis neonatal [Unknown]
  - Foetal exposure during pregnancy [Unknown]
  - Phimosis [Unknown]
  - Wound infection [Unknown]
  - Pleural effusion [Unknown]
  - Neonatal hypotension [Unknown]
  - Developmental delay [Unknown]
  - Ventricular dysfunction [Unknown]
  - Hypoxia [Unknown]
  - Cardiomegaly [Unknown]
  - Right aortic arch [Unknown]
  - Congenital choroid plexus cyst [Unknown]
  - Congenital anomaly [Unknown]
  - Hypoglycaemia neonatal [Unknown]
  - Pulmonary congestion [Unknown]
  - Neonatal respiratory distress syndrome [Unknown]
  - Atrial tachycardia [Unknown]
  - Ventricular hypertrophy [Unknown]
  - Left ventricular hypertrophy [Unknown]
  - Injury [Unknown]
  - Hyperbilirubinaemia neonatal [Unknown]
  - Transposition of the great vessels [Unknown]
  - Left ventricle outflow tract obstruction [Unknown]
  - Heart disease congenital [Unknown]
  - Brain malformation [Unknown]
  - Pulmonary oedema neonatal [Unknown]
  - Pneumothorax [Unknown]
  - Right ventricular hypertrophy [Unknown]
  - Cyanosis neonatal [Unknown]
  - Neonatal respiratory failure [Unknown]
  - Sepsis neonatal [Unknown]
  - Cerebral haemorrhage [Unknown]
  - Lung hyperinflation [Unknown]
